FAERS Safety Report 9169675 (Version 1)
Quarter: 2013Q1

REPORT INFORMATION
  Report Type: Spontaneous
  Country: US (occurrence: US)
  Receive Date: 20130318
  Receipt Date: 20130318
  Transmission Date: 20140127
  Serious: Yes (Hospitalization)
  Sender: FDA-Public Use
  Company Number: US-PFIZER INC-2013086204

PATIENT
  Age: 45 Year
  Sex: Female

DRUGS (3)
  1. CYTARABINE [Suspect]
     Indication: B PRECURSOR TYPE ACUTE LEUKAEMIA
     Dosage: 100 MG, CYCLIC (TWICE WEEKLY ALTERNATING WITH METHOTREXATE)
     Route: 037
  2. CYTARABINE [Suspect]
     Dosage: 500 MG, SINGLE
     Route: 037
  3. METHOTREXATE [Concomitant]
     Indication: B PRECURSOR TYPE ACUTE LEUKAEMIA
     Dosage: 12 MG, CYCLIC (TWICE WEEKLY ALTERNATING WITH CYTARABINE)
     Route: 037

REACTIONS (4)
  - Drug dispensing error [Recovered/Resolved]
  - Accidental overdose [Recovered/Resolved]
  - Headache [Recovered/Resolved]
  - Vomiting [Recovered/Resolved]
